FAERS Safety Report 21747204 (Version 1)
Quarter: 2022Q4

REPORT INFORMATION
  Report Type: Spontaneous
  Country: ZA (occurrence: None)
  Receive Date: 20221215
  Receipt Date: 20221215
  Transmission Date: 20230112
  Serious: Yes (Other)
  Sender: FDA-Public Use
  Company Number: None

PATIENT
  Age: 28 Year
  Sex: Female
  Weight: 61 kg

DRUGS (1)
  1. BENZOCAINE\CETYLPYRIDINIUM CHLORIDE [Suspect]
     Active Substance: BENZOCAINE\CETYLPYRIDINIUM CHLORIDE
     Indication: Tooth abscess
     Route: 048

REACTIONS (2)
  - Feeling abnormal [None]
  - Seizure like phenomena [None]
